FAERS Safety Report 5563344-6 (Version None)
Quarter: 2007Q4

REPORT INFORMATION
  Report Type: 
  Country: None (occurrence: None)
  Receive Date: 20071217
  Receipt Date: 20071206
  Transmission Date: 20080405
  Serious: Yes (Other)
  Sender: FDA-Public Use
  Company Number: PHBS2007JP18490

PATIENT
  Age: 58 Year
  Sex: Female

DRUGS (2)
  1. ZOMETA [Suspect]
     Indication: METASTASES TO BONE
     Dosage: 4 MG, UNK
     Route: 042
     Dates: start: 20060629, end: 20071023
  2. PACLITAXEL [Concomitant]

REACTIONS (12)
  - BLOOD ALKALINE PHOSPHATASE INCREASED [None]
  - DRY MOUTH [None]
  - DYSGEUSIA [None]
  - GAMMA-GLUTAMYLTRANSFERASE INCREASED [None]
  - GINGIVAL DISORDER [None]
  - MOUTH HAEMORRHAGE [None]
  - OSTEOMYELITIS [None]
  - PAIN [None]
  - PYREXIA [None]
  - SENSITIVITY OF TEETH [None]
  - STOMATITIS [None]
  - TOOTH DISORDER [None]
